FAERS Safety Report 7515256-6 (Version None)
Quarter: 2011Q2

REPORT INFORMATION
  Report Type: 
  Country: None (occurrence: None)
  Receive Date: 20110601
  Receipt Date: 20100602
  Transmission Date: 20111010
  Serious: No
  Sender: FDA-Public Use
  Company Number: US-PFIZER INC-2010062455

PATIENT
  Sex: Male
  Weight: 81.179 kg

DRUGS (1)
  1. CHANTIX [Suspect]
     Indication: NICOTINE DEPENDENCE
     Dosage: 1 MG, 2X/DAY
     Route: 048
     Dates: start: 20100113, end: 20100120

REACTIONS (3)
  - ABDOMINAL PAIN UPPER [None]
  - WEIGHT INCREASED [None]
  - AXILLARY MASS [None]
